FAERS Safety Report 15786838 (Version 1)
Quarter: 2019Q1

REPORT INFORMATION
  Report Type: Spontaneous
  Country: US (occurrence: US)
  Receive Date: 20190103
  Receipt Date: 20190103
  Transmission Date: 20190417
  Serious: Yes (Other)
  Sender: FDA-Public Use
  Company Number: US-PFIZER INC-2018534538

PATIENT
  Age: 62 Year
  Sex: Male

DRUGS (1)
  1. THROMBIN [Suspect]
     Active Substance: THROMBIN
     Dosage: UNK

REACTIONS (1)
  - Coagulation factor decreased [Unknown]
